FAERS Safety Report 23513128 (Version 1)
Quarter: 2024Q1

REPORT INFORMATION
  Report Type: Spontaneous
  Country: US (occurrence: None)
  Receive Date: 20240210
  Receipt Date: 20240210
  Transmission Date: 20240410
  Serious: Yes (Disabling)
  Sender: FDA-Public Use
  Company Number: None

PATIENT
  Age: 42 Year
  Sex: Male
  Weight: 63 kg

DRUGS (15)
  1. DAYVIGO [Suspect]
     Active Substance: LEMBOREXANT
     Indication: Insomnia
     Dosage: OTHER QUANTITY : 30 TABLET(S);?FREQUENCY : AT BEDTIME;?
     Route: 048
     Dates: start: 20230824, end: 20231228
  2. VENLAFAXINE [Concomitant]
     Active Substance: VENLAFAXINE HYDROCHLORIDE
  3. DOXAZOSIN [Concomitant]
     Active Substance: DOXAZOSIN MESYLATE
  4. BECLOMETHASONE [Concomitant]
     Active Substance: BECLOMETHASONE
  5. LISDEXAMFETAMINE [Concomitant]
     Active Substance: LISDEXAMFETAMINE
  6. LAMOTRIGINE [Concomitant]
     Active Substance: LAMOTRIGINE
  7. CLONAZEPAM [Concomitant]
     Active Substance: CLONAZEPAM
  8. ALBUTEROL [Concomitant]
     Active Substance: ALBUTEROL
  9. FAMOTIDINE [Concomitant]
     Active Substance: FAMOTIDINE
  10. NAC [Concomitant]
  11. NICOTINAMIDE RIBOSIDE [Concomitant]
     Active Substance: NICOTINAMIDE RIBOSIDE
  12. EPA/DHA [Concomitant]
  13. VITAMIN D3 [Concomitant]
     Active Substance: CHOLECALCIFEROL
  14. MELATONIN [Concomitant]
     Active Substance: MELATONIN
  15. l- methylfolate [Concomitant]

REACTIONS (1)
  - Herpes zoster [None]

NARRATIVE: CASE EVENT DATE: 20231228
